FAERS Safety Report 8318790-4 (Version None)
Quarter: 2012Q1

REPORT INFORMATION
  Report Type: 
  Country: None (occurrence: None)
  Receive Date: 20120315
  Receipt Date: 20110614
  Transmission Date: 20120608
  Serious: Yes (Other)
  Sender: FDA-Public Use
  Company Number: PHHY2011US52631

PATIENT
  Age: 42 Year
  Sex: Female

DRUGS (8)
  1. LEVETIRACETAM [Concomitant]
  2. GILENYA [Suspect]
     Indication: RELAPSING-REMITTING MULTIPLE SCLEROSIS
     Dosage: 0.5 MG, QD, ORAL
     Route: 048
     Dates: start: 20110128
  3. TEGRETOL [Concomitant]
  4. LEXAPRO [Concomitant]
  5. PROVENTIL [Concomitant]
  6. FLOVENT [Concomitant]
  7. PROVIGIL [Concomitant]
  8. JUVEL (VITAMINS NOS) [Concomitant]

REACTIONS (1)
  - HYPERTENSION [None]
